FAERS Safety Report 4934220-4 (Version None)
Quarter: 2006Q1

REPORT INFORMATION
  Report Type: 
  Country: None (occurrence: None)
  Receive Date: 20060307
  Receipt Date: 20060221
  Transmission Date: 20060701
  Serious: Yes (Hospitalization, Other)
  Sender: FDA-Public Use
  Company Number: 2006PK00422

PATIENT
  Age: 13609 Day
  Sex: Female

DRUGS (3)
  1. NOLVADEX [Suspect]
     Indication: BREAST CANCER
     Route: 048
     Dates: start: 19991216, end: 20021017
  2. ZOLADEX [Suspect]
     Indication: BREAST CANCER
     Route: 058
     Dates: start: 19991216, end: 20021017
  3. ZOLEDRONAT [Suspect]
     Indication: BREAST CANCER
     Route: 042
     Dates: start: 19991216, end: 20021017

REACTIONS (3)
  - ENDOMETRIAL HYPERPLASIA [None]
  - ENDOMETRIAL NEOPLASM [None]
  - SMEAR CERVIX ABNORMAL [None]
